FAERS Safety Report 18132458 (Version 1)
Quarter: 2020Q3

REPORT INFORMATION
  Report Type: Spontaneous
  Country: US (occurrence: US)
  Receive Date: 20200811
  Receipt Date: 20200811
  Transmission Date: 20201103
  Serious: Yes (Hospitalization)
  Sender: FDA-Public Use
  Company Number: US-CADILA HEALTHCARE LIMITED-US-ZYDUS-054099

PATIENT

DRUGS (5)
  1. SODIUM CITRATE. [Suspect]
     Active Substance: SODIUM CITRATE
     Dosage: 1.3 MILLIEQUIVALENT PER KILOGRAM, QD
     Route: 048
  2. NYSTATIN. [Suspect]
     Active Substance: NYSTATIN
     Indication: CANDIDA INFECTION
     Dosage: UNK
     Route: 065
  3. POTASSIUM CITRATE. [Suspect]
     Active Substance: POTASSIUM CITRATE
     Indication: RENAL TUBULAR ACIDOSIS
     Dosage: 4.4 MILLIEQUIVALENT PER KILOGRAM, QD (2.5 ML 3 TIMES DAILY)
     Route: 065
  4. CITRIC ACID [Suspect]
     Active Substance: CITRIC ACID MONOHYDRATE
     Indication: RENAL TUBULAR ACIDOSIS
     Dosage: UNK (1,100 MG/334 MG PER 5 ML)
     Route: 065
  5. SODIUM CITRATE. [Suspect]
     Active Substance: SODIUM CITRATE
     Indication: RENAL TUBULAR ACIDOSIS
     Dosage: 8.8 MILLIEQUIVALENT PER KILOGRAM, QD
     Route: 048

REACTIONS (4)
  - Neurotoxicity [Recovered/Resolved]
  - Toxicity to various agents [Recovered/Resolved]
  - Blood osmolarity increased [Recovered/Resolved]
  - Mental status changes [Recovered/Resolved]
